FAERS Safety Report 15625990 (Version 1)
Quarter: 2018Q4

REPORT INFORMATION
  Report Type: Spontaneous
  Country: CN (occurrence: CN)
  Receive Date: 20181116
  Receipt Date: 20181116
  Transmission Date: 20190205
  Serious: Yes (Hospitalization, Disabling, Other)
  Sender: FDA-Public Use
  Company Number: CN-ELI_LILLY_AND_COMPANY-CN201811003253

PATIENT
  Age: 66 Year
  Sex: Female
  Weight: 72.5 kg

DRUGS (6)
  1. HUMALOG [Suspect]
     Active Substance: INSULIN LISPRO
     Dosage: 12 U, DAILY BEFORE SLEEP
     Route: 058
     Dates: start: 20181011
  2. ACARBOSE. [Concomitant]
     Active Substance: ACARBOSE
     Indication: TYPE 2 DIABETES MELLITUS
     Dosage: 1 DF, TID
     Route: 048
     Dates: start: 201010
  3. GLUCOPHAGE [Concomitant]
     Active Substance: METFORMIN HYDROCHLORIDE
     Indication: TYPE 2 DIABETES MELLITUS
     Dosage: 1 DF, DAILY
     Route: 048
     Dates: start: 2015, end: 20181011
  4. HUMULIN 70/30 [Suspect]
     Active Substance: INSULIN HUMAN
     Dosage: 21 U, DAILY AT NIGHT
     Route: 058
     Dates: start: 20101001, end: 20181011
  5. HUMALOG [Suspect]
     Active Substance: INSULIN LISPRO
     Indication: TYPE 2 DIABETES MELLITUS
     Dosage: 10 U, TID
     Route: 058
     Dates: start: 20181011
  6. HUMULIN 70/30 [Suspect]
     Active Substance: INSULIN HUMAN
     Indication: TYPE 2 DIABETES MELLITUS
     Dosage: 23 U, EACH MORNING
     Route: 058
     Dates: start: 20101001, end: 20181011

REACTIONS (9)
  - Blood glucose abnormal [Unknown]
  - Hemiplegia [Unknown]
  - Lumbar vertebral fracture [Unknown]
  - Memory impairment [Unknown]
  - Visual impairment [Unknown]
  - Hypoglycaemia [Unknown]
  - Fall [Unknown]
  - Brain stem stroke [Unknown]
  - Cerebral disorder [Unknown]

NARRATIVE: CASE EVENT DATE: 2017
